FAERS Safety Report 8288967-5 (Version None)
Quarter: 2012Q2

REPORT INFORMATION
  Report Type: 
  Country: None (occurrence: None)
  Receive Date: 20120412
  Receipt Date: 20120410
  Transmission Date: 20120825
  Serious: Yes (Death)
  Sender: FDA-Public Use
  Company Number: ADR-2011-10983

PATIENT
  Age: 39 Year
  Sex: Male

DRUGS (1)
  1. LIORESAL [Suspect]
     Indication: MUSCLE SPASTICITY
     Dosage: 50 MCG, TESTING DOSE, I

REACTIONS (4)
  - BUNDLE BRANCH BLOCK RIGHT [None]
  - BRADYCARDIA [None]
  - HYPOTENSION [None]
  - CARDIAC ARREST [None]
